FAERS Safety Report 17147307 (Version 1)
Quarter: 2019Q4

REPORT INFORMATION
  Report Type: Spontaneous
  Country: US (occurrence: US)
  Receive Date: 20191212
  Receipt Date: 20191212
  Transmission Date: 20200122
  Serious: Yes (Other)
  Sender: FDA-Public Use
  Company Number: US-GALDERMA-US19031645

PATIENT
  Sex: Female

DRUGS (2)
  1. CEFTRIAXONE. [Concomitant]
     Active Substance: CEFTRIAXONE
     Indication: PYELONEPHRITIS
     Route: 065
  2. DOXYCYCLINE. [Suspect]
     Active Substance: DOXYCYCLINE
     Indication: PYELONEPHRITIS
     Route: 065

REACTIONS (4)
  - Pyrexia [Unknown]
  - Intentional product use issue [Recovered/Resolved]
  - Jarisch-Herxheimer reaction [Unknown]
  - Rash [Unknown]
